FAERS Safety Report 16617870 (Version 4)
Quarter: 2019Q3

REPORT INFORMATION
  Report Type: Spontaneous
  Country: BR (occurrence: BR)
  Receive Date: 20190723
  Receipt Date: 20190906
  Transmission Date: 20191004
  Serious: Yes (Other)
  Sender: FDA-Public Use
  Company Number: BR-SA-2019SA191854

PATIENT
  Sex: Female

DRUGS (1)
  1. LANTUS [Suspect]
     Active Substance: INSULIN GLARGINE
     Indication: DIABETES MELLITUS
     Dosage: 60 IU, QD
     Route: 065

REACTIONS (5)
  - Angina pectoris [Recovered/Resolved]
  - Expired device used [Unknown]
  - Blood glucose fluctuation [Unknown]
  - Unevaluable event [Unknown]
  - Nervousness [Unknown]
